FAERS Safety Report 8967069 (Version 2)
Quarter: 2013Q1

REPORT INFORMATION
  Report Type: Spontaneous
  Country: US (occurrence: US)
  Receive Date: 20121214
  Receipt Date: 20130211
  Transmission Date: 20140127
  Serious: Yes (Death, Hospitalization, Other)
  Sender: FDA-Public Use
  Company Number: US-ASTELLAS-2012US012256

PATIENT
  Age: 63 None
  Sex: Female

DRUGS (2)
  1. TARCEVA [Suspect]
     Indication: LUNG NEOPLASM MALIGNANT
     Dosage: 100 MG, UNKNOWN/D
     Route: 048
     Dates: start: 20100824
  2. TARCEVA [Suspect]
     Indication: METASTASES TO NERVOUS SYSTEM

REACTIONS (4)
  - Incorrect dose administered [Unknown]
  - Malignant neoplasm progression [Fatal]
  - Metastases to central nervous system [Unknown]
  - Abdominal pain [Unknown]
